FAERS Safety Report 6331942-8 (Version None)
Quarter: 2009Q3

REPORT INFORMATION
  Report Type: 
  Country: None (occurrence: None)
  Receive Date: 20090828
  Receipt Date: 20070823
  Transmission Date: 20100115
  Serious: Yes (Other)
  Sender: FDA-Public Use
  Company Number: US-ASTRAZENECA-2006UW07746

PATIENT
  Age: 14910 Day
  Sex: Male
  Weight: 104.8 kg

DRUGS (24)
  1. SEROQUEL [Suspect]
     Indication: SCHIZOPHRENIA
     Dosage: 200 - 900 MG DAILY
     Route: 048
     Dates: start: 20030416
  2. SEROQUEL [Suspect]
     Indication: AFFECTIVE DISORDER
     Dosage: 200 - 900 MG DAILY
     Route: 048
     Dates: start: 20030416
  3. SEROQUEL [Suspect]
     Route: 048
     Dates: start: 20041001, end: 20050901
  4. SEROQUEL [Suspect]
     Route: 048
     Dates: start: 20041001, end: 20050901
  5. RESTORIL [Concomitant]
     Route: 048
     Dates: start: 20030416
  6. LITHIUM CARBONATE [Concomitant]
     Indication: AFFECTIVE DISORDER
     Dosage: 900 - 1200 MG DAILY
     Route: 048
     Dates: start: 20030416
  7. REMERON [Concomitant]
     Route: 048
     Dates: start: 20030416
  8. GEODON [Concomitant]
     Indication: HALLUCINATION, AUDITORY
     Dosage: 160 - 200 MG DAILY
     Route: 048
     Dates: start: 20030416
  9. GEODON [Concomitant]
     Indication: AFFECTIVE DISORDER
     Dosage: 160 - 200 MG DAILY
     Route: 048
     Dates: start: 20030416
  10. GEODON [Concomitant]
     Indication: PSYCHOTIC DISORDER
     Dosage: 160 - 200 MG DAILY
     Route: 048
     Dates: start: 20030416
  11. STRATTERA [Concomitant]
     Dosage: 18 - 40 MG DAILY
     Dates: start: 20030416
  12. PROZAC [Concomitant]
     Dates: start: 20030527
  13. ZOLOFT [Concomitant]
     Indication: DEPRESSION
     Dosage: 100 - 200 MG DAILY
     Route: 048
     Dates: start: 20020101
  14. ZOLOFT [Concomitant]
     Indication: ANXIETY
     Dosage: 100 - 200 MG DAILY
     Route: 048
     Dates: start: 20020101
  15. KLONOPIN [Concomitant]
     Dosage: 3 - 6 MG DAILY
     Dates: start: 20051129
  16. SYNTHROID [Concomitant]
     Dates: start: 20051213
  17. TRAZODONE HCL [Concomitant]
     Dates: start: 20070415
  18. WELLBUTRIN [Concomitant]
     Dates: start: 20020101
  19. NEURONTIN [Concomitant]
     Dates: start: 20020101
  20. BUSPAR [Concomitant]
     Dates: start: 20020101
  21. EFFEXOR XR [Concomitant]
     Dates: start: 20020101
  22. RISPERDAL [Concomitant]
     Dates: start: 20020101
  23. HALDOL [Concomitant]
     Dates: start: 20020101
  24. ZYPREXA [Concomitant]
     Dates: start: 20020101

REACTIONS (4)
  - DIABETES MELLITUS [None]
  - NEUROPATHY PERIPHERAL [None]
  - OBESITY [None]
  - TYPE 2 DIABETES MELLITUS [None]
